FAERS Safety Report 9379889 (Version 1)
Quarter: 2013Q2

REPORT INFORMATION
  Report Type: Spontaneous
  Country: US (occurrence: None)
  Receive Date: 20130627
  Receipt Date: 20130627
  Transmission Date: 20140414
  Serious: Yes (Other)
  Sender: FDA-Public Use
  Company Number: 2013P1009644

PATIENT
  Age: 51 Year
  Sex: Female

DRUGS (18)
  1. INFUMORPH [Suspect]
     Indication: COMPLEX REGIONAL PAIN SYNDROME
     Route: 037
  2. INFUMORPH [Suspect]
     Indication: PAIN
     Route: 037
  3. INFUMORPH [Suspect]
     Indication: COMPLEX REGIONAL PAIN SYNDROME
     Route: 037
  4. MORPHINE [Suspect]
     Indication: COMPLEX REGIONAL PAIN SYNDROME
     Route: 037
  5. MORPHINE [Suspect]
     Indication: PAIN
     Route: 037
  6. MORPHINE [Suspect]
     Route: 037
  7. BUPIVICAINE [Suspect]
     Indication: COMPLEX REGIONAL PAIN SYNDROME
     Route: 037
  8. BUPIVICAINE [Suspect]
     Indication: PAIN
     Route: 037
  9. BUPIVICAINE [Suspect]
     Route: 037
  10. BACLOFEN [Suspect]
     Indication: COMPLEX REGIONAL PAIN SYNDROME
     Route: 037
  11. BACLOFEN [Suspect]
     Indication: PAIN
     Route: 037
  12. BACLOFEN [Suspect]
     Route: 037
  13. COMPOUNDED BACLOFEN (INTRATHECAL) - 2000 MCG/ML [Suspect]
     Indication: COMPLEX REGIONAL PAIN SYNDROME
     Route: 037
  14. COMPOUNDED BACLOFEN (INTRATHECAL) - 2000 MCG/ML [Suspect]
     Indication: PAIN
     Route: 037
  15. COMPOUNDED BACLOFEN (INTRATHECAL) - 2000 MCG/ML [Suspect]
     Route: 037
  16. LIORESAL [Suspect]
     Indication: COMPLEX REGIONAL PAIN SYNDROME
     Route: 037
  17. LIORESAL [Suspect]
     Indication: PAIN
     Route: 037
  18. LIORESAL [Suspect]
     Route: 037

REACTIONS (16)
  - Drug withdrawal syndrome [None]
  - Somnolence [None]
  - Diarrhoea [None]
  - Somnolence [None]
  - Anxiety [None]
  - Device malfunction [None]
  - Depression [None]
  - Confusional state [None]
  - Disorientation [None]
  - Fatigue [None]
  - Malaise [None]
  - Therapeutic response decreased [None]
  - Overdose [None]
  - Feeling abnormal [None]
  - Influenza like illness [None]
  - Drug interaction [None]
